FAERS Safety Report 23625677 (Version 1)
Quarter: 2024Q1

REPORT INFORMATION
  Report Type: Spontaneous
  Country: DE (occurrence: DE)
  Receive Date: 20240313
  Receipt Date: 20240313
  Transmission Date: 20240409
  Serious: Yes (Other)
  Sender: FDA-Public Use
  Company Number: DE-MEDAC-2022000743

PATIENT
  Age: 81 Year
  Sex: Male

DRUGS (3)
  1. ASPIRIN [Suspect]
     Active Substance: ASPIRIN
     Indication: Product used for unknown indication
     Dosage: EVERY 4 DAYS
     Route: 065
  2. ANAGRELIDE [Interacting]
     Active Substance: ANAGRELIDE
     Indication: Product used for unknown indication
     Dosage: TAKEN IN THE MORNING AND IN THE EVENING
     Route: 065
  3. HYDROXYUREA [Interacting]
     Active Substance: HYDROXYUREA
     Indication: Essential thrombocythaemia
     Dosage: 1-0-1
     Route: 065
     Dates: start: 2018

REACTIONS (8)
  - Platelet count increased [Not Recovered/Not Resolved]
  - Drug interaction [Not Recovered/Not Resolved]
  - Dry skin [Not Recovered/Not Resolved]
  - Burning sensation [Not Recovered/Not Resolved]
  - Fatigue [Not Recovered/Not Resolved]
  - Paraesthesia [Not Recovered/Not Resolved]
  - Abdominal distension [Not Recovered/Not Resolved]
  - Nausea [Not Recovered/Not Resolved]

NARRATIVE: CASE EVENT DATE: 20240101
